FAERS Safety Report 12658817 (Version 1)
Quarter: 2016Q3

REPORT INFORMATION
  Report Type: Spontaneous
  Country: None (occurrence: None)
  Receive Date: 20160816
  Receipt Date: 20160816
  Transmission Date: 20161109
  Serious: Yes (Hospitalization)
  Sender: FDA-Public Use
  Company Number: None

PATIENT
  Age: 46 Year
  Sex: Female
  Weight: 93.8 kg

DRUGS (1)
  1. ENTRESTO [Suspect]
     Active Substance: SACUBITRIL\VALSARTAN
     Indication: CARDIAC FAILURE
     Route: 048
     Dates: start: 20160705, end: 20160711

REACTIONS (3)
  - Rhabdomyolysis [None]
  - Oedema peripheral [None]
  - Acute kidney injury [None]

NARRATIVE: CASE EVENT DATE: 20160712
